FAERS Safety Report 9733517 (Version 1)
Quarter: 2013Q4

REPORT INFORMATION
  Report Type: Spontaneous
  Country: CA (occurrence: CA)
  Receive Date: 20131205
  Receipt Date: 20131205
  Transmission Date: 20140711
  Serious: Yes (Death, Hospitalization)
  Sender: FDA-Public Use
  Company Number: CA-ROCHE-1311661

PATIENT
  Age: 25 Year
  Sex: Female

DRUGS (11)
  1. NAPROXEN [Suspect]
     Indication: PRODUCT USED FOR UNKNOWN INDICATION
     Dosage: THERAPY DURATION: 5.0 DAYS
     Route: 065
  2. IPILIMUMAB [Suspect]
     Indication: PRODUCT USED FOR UNKNOWN INDICATION
     Dosage: THERAPY DURATION: 1.0 DAYS
     Route: 042
  3. CLOXACILLIN SODIUM [Suspect]
     Indication: PRODUCT USED FOR UNKNOWN INDICATION
     Dosage: THERAPY DURATION: 5.0 DAYS
     Route: 065
  4. PANTOPRAZOLE [Suspect]
     Indication: PRODUCT USED FOR UNKNOWN INDICATION
     Dosage: THERAPY DURATION: 1.0 DAYS
     Route: 065
  5. DOCUSATE SODIUM [Concomitant]
     Route: 065
  6. GABAPENTIN [Concomitant]
     Route: 065
  7. HYDROMORPHONE [Concomitant]
     Route: 065
  8. LOPERAMIDE [Concomitant]
     Route: 065
  9. METHOTRIMEPRAZINE [Concomitant]
     Route: 065
  10. METOCLOPRAMIDE [Concomitant]
     Route: 065
  11. ONDANSETRON [Concomitant]
     Route: 065

REACTIONS (5)
  - Concomitant disease progression [Fatal]
  - Malignant melanoma [Fatal]
  - Neoplasm progression [Fatal]
  - Renal failure [Fatal]
  - Neoplasm malignant [Fatal]
